FAERS Safety Report 6133075-2 (Version None)
Quarter: 2009Q1

REPORT INFORMATION
  Report Type: 
  Country: None (occurrence: None)
  Receive Date: 20090326
  Receipt Date: 20090318
  Transmission Date: 20090719
  Serious: Yes (Hospitalization, Other)
  Sender: FDA-Public Use
  Company Number: US-BIOGENIDEC-2009BI008341

PATIENT
  Age: 41 Year
  Sex: Male
  Weight: 91 kg

DRUGS (1)
  1. AVONEX [Suspect]
     Indication: MULTIPLE SCLEROSIS
     Route: 030
     Dates: start: 20080501

REACTIONS (4)
  - INFECTION [None]
  - JOINT DISLOCATION [None]
  - LIGAMENT RUPTURE [None]
  - STAPHYLOCOCCAL INFECTION [None]
